FAERS Safety Report 9539996 (Version 2)
Quarter: 2013Q3

REPORT INFORMATION
  Report Type: Spontaneous
  Country: JP (occurrence: JP)
  Receive Date: 20130920
  Receipt Date: 20130920
  Transmission Date: 20140515
  Serious: Yes (Death, Life-Threatening)
  Sender: FDA-Public Use
  Company Number: JP-ABBVIE-13X-087-1118392-00

PATIENT
  Age: 9 Month
  Sex: Female

DRUGS (2)
  1. CLARITH [Suspect]
     Indication: NASOPHARYNGITIS
     Dosage: DRY SYRUP
     Route: 048
  2. ONON [Concomitant]
     Indication: PRODUCT USED FOR UNKNOWN INDICATION
     Route: 048

REACTIONS (4)
  - Long QT syndrome [Fatal]
  - Atrioventricular block [Recovered/Resolved with Sequelae]
  - Torsade de pointes [Recovered/Resolved with Sequelae]
  - Ventricular tachycardia [Recovered/Resolved with Sequelae]
